FAERS Safety Report 5767006-1 (Version None)
Quarter: 2008Q2

REPORT INFORMATION
  Report Type: 
  Country: None (occurrence: None)
  Receive Date: 20080612
  Receipt Date: 20080603
  Transmission Date: 20081010
  Serious: Yes (Hospitalization)
  Sender: FDA-Public Use
  Company Number: GB-JNJFOC-20080103815

PATIENT
  Age: 47 Year
  Sex: Female

DRUGS (7)
  1. HALOPERIDOL [Interacting]
     Indication: ANTIEMETIC SUPPORTIVE CARE
     Route: 058
  2. HALOPERIDOL [Suspect]
     Indication: DRUG USE FOR UNKNOWN INDICATION
     Route: 048
  3. FLUOXETINE HCL [Suspect]
     Indication: DEPRESSION
     Route: 048
  4. LEVOMEPROMAZINE [Suspect]
     Indication: ANTIEMETIC SUPPORTIVE CARE
     Route: 048
  5. OXYCODONE HCL [Interacting]
     Route: 058
  6. OXYCODONE HCL [Interacting]
     Indication: OVARIAN CANCER
     Route: 058
  7. CYCLIZINE [Interacting]
     Indication: ANTIEMETIC SUPPORTIVE CARE
     Route: 058

REACTIONS (2)
  - AKATHISIA [None]
  - DRUG INTERACTION [None]
